FAERS Safety Report 9162175 (Version 1)
Quarter: 2013Q1

REPORT INFORMATION
  Report Type: Spontaneous
  Country: AT (occurrence: AT)
  Receive Date: 20130314
  Receipt Date: 20130314
  Transmission Date: 20140127
  Serious: Yes (Hospitalization)
  Sender: FDA-Public Use
  Company Number: AT-BAYER-2013-028993

PATIENT
  Age: 26 Year
  Sex: Female
  Weight: 53 kg

DRUGS (3)
  1. YAZ [Suspect]
     Indication: ORAL CONTRACEPTION
     Dosage: UNK
     Route: 048
     Dates: start: 201210, end: 20130211
  2. GASTROLOC [Concomitant]
     Indication: NAUSEA
     Dosage: UNK
     Dates: start: 20130205, end: 20130211
  3. TRAMABENE [Concomitant]
     Indication: ANALGESIC THERAPY
     Dosage: 30 GTT, UNK
     Dates: start: 20130205, end: 20130211

REACTIONS (4)
  - Cardiovascular disorder [Not Recovered/Not Resolved]
  - Headache [Not Recovered/Not Resolved]
  - Hypoaesthesia [Not Recovered/Not Resolved]
  - Cerebral venous thrombosis [Not Recovered/Not Resolved]
